FAERS Safety Report 9461710 (Version 2)
Quarter: 2013Q3

REPORT INFORMATION
  Report Type: Spontaneous
  Country: US (occurrence: US)
  Receive Date: 20130816
  Receipt Date: 20130903
  Transmission Date: 20140515
  Serious: Yes (Other)
  Sender: FDA-Public Use
  Company Number: US-JNJFOC-20130804675

PATIENT
  Age: 82 Year
  Sex: Female
  Weight: 62.6 kg

DRUGS (2)
  1. NUCYNTA IR [Suspect]
     Indication: PRODUCT USED FOR UNKNOWN INDICATION
     Route: 048
     Dates: start: 20130214, end: 20130215
  2. NUCYNTA ER [Suspect]
     Indication: PRODUCT USED FOR UNKNOWN INDICATION
     Route: 048
     Dates: start: 20130214, end: 20130215

REACTIONS (4)
  - Loss of consciousness [Unknown]
  - Hallucination, auditory [Unknown]
  - Insomnia [Unknown]
  - Tremor [Unknown]
